FAERS Safety Report 10236933 (Version 1)
Quarter: 2014Q2

REPORT INFORMATION
  Report Type: Spontaneous
  Country: US (occurrence: US)
  Receive Date: 20140613
  Receipt Date: 20140613
  Transmission Date: 20141212
  Serious: Yes (Other)
  Sender: FDA-Public Use
  Company Number: US-PFIZER INC-2014160570

PATIENT
  Age: 63 Year
  Sex: Male
  Weight: 93.42 kg

DRUGS (6)
  1. LYRICA [Suspect]
     Indication: BACK INJURY
     Dosage: 100 MG, 3X/DAY
  2. LYRICA [Suspect]
     Indication: NECK INJURY
  3. LYRICA [Suspect]
     Indication: JOINT INJURY
  4. LYRICA [Suspect]
     Indication: JOINT INJURY
  5. LYRICA [Suspect]
     Indication: RHEUMATOID ARTHRITIS
  6. LYRICA [Suspect]
     Indication: FIBROMYALGIA

REACTIONS (3)
  - Drug withdrawal syndrome [Unknown]
  - Gait disturbance [Unknown]
  - Mobility decreased [Unknown]
